FAERS Safety Report 18612212 (Version 1)
Quarter: 2020Q4

REPORT INFORMATION
  Report Type: Report from Study
  Country: None (occurrence: US)
  Receive Date: 20201214
  Receipt Date: 20201214
  Transmission Date: 20210114
  Serious: No
  Sender: FDA-Public Use
  Company Number: US-BIOVITRUM-2020US7369

PATIENT
  Sex: Female

DRUGS (6)
  1. ATIVAN [Concomitant]
     Active Substance: LORAZEPAM
  2. KINERET [Suspect]
     Active Substance: ANAKINRA
     Indication: PRODUCT USED FOR UNKNOWN INDICATION
     Route: 058
     Dates: start: 20201203
  3. PREDNISONE. [Concomitant]
     Active Substance: PREDNISONE
  4. FENTANYL. [Concomitant]
     Active Substance: FENTANYL
  5. COLCHICINE. [Concomitant]
     Active Substance: COLCHICINE
  6. ADVIL [Concomitant]
     Active Substance: IBUPROFEN

REACTIONS (5)
  - Muscle spasms [Unknown]
  - Injection site reaction [Unknown]
  - Injection site bruising [Unknown]
  - Insomnia [Unknown]
  - Injection site urticaria [Unknown]
